FAERS Safety Report 9444208 (Version 1)
Quarter: 2013Q3

REPORT INFORMATION
  Report Type: Spontaneous
  Country: GB (occurrence: None)
  Receive Date: 20130724
  Receipt Date: 20130724
  Transmission Date: 20140515
  Serious: Yes (Other)
  Sender: FDA-Public Use
  Company Number: BTG00077

PATIENT
  Age: 86 Year
  Sex: Female

DRUGS (3)
  1. DIGIFAB [Suspect]
     Indication: TOXICITY TO VARIOUS AGENTS
     Dosage: 8 DF SINGLE
     Dates: start: 20130709
  2. DIGOXIN (DIGOXIN) [Suspect]
     Indication: PRODUCT USED FOR UNKNOWN INDICATION
  3. DIGOXIN (DIGOXIN) [Suspect]

REACTIONS (3)
  - Bradycardia [None]
  - Drug ineffective [None]
  - Toxicity to various agents [None]
